FAERS Safety Report 6576163-9 (Version None)
Quarter: 2010Q1

REPORT INFORMATION
  Report Type: 
  Country: None (occurrence: None)
  Receive Date: 20100209
  Receipt Date: 20100122
  Transmission Date: 20100710
  Serious: Yes (Death)
  Sender: FDA-Public Use
  Company Number: PHHY2009JP58095

PATIENT
  Sex: Female
  Weight: 52 kg

DRUGS (12)
  1. DIOVAN [Suspect]
     Indication: HYPERTENSION
     Dosage: 40 MG, QD
     Route: 048
     Dates: start: 20071122, end: 20071220
  2. DIOVAN [Suspect]
     Dosage: 80 MG, QD
     Route: 048
     Dates: start: 20071220, end: 20080228
  3. DIOVAN [Suspect]
     Dosage: 160 MG, QD
     Route: 048
     Dates: start: 20080228
  4. CORINAEL [Concomitant]
     Indication: HYPERTENSION
     Dosage: 20 MG, UNK
     Route: 048
  5. CORINAEL [Concomitant]
     Dosage: 40 MG, UNK
     Route: 048
     Dates: end: 20080805
  6. CORINAEL [Concomitant]
     Dosage: 20 MG, UNK
     Route: 048
  7. PRAVASTATIN [Concomitant]
     Dosage: 5 MG, UNK
     Route: 048
  8. PANAPIDIN [Concomitant]
     Dosage: 200 MG, UNK
     Route: 048
  9. BEPRICOR [Concomitant]
     Dosage: 300 MG, UNK
     Route: 048
     Dates: start: 20090108
  10. PRONON [Concomitant]
     Dosage: 450 MG, UNK
     Route: 048
     Dates: start: 20090212
  11. NIKORANMART [Concomitant]
     Dosage: 15 MG, UNK
     Route: 048
     Dates: start: 20090212
  12. NITOROL [Concomitant]
     Dosage: 40 MG, UNK
     Route: 048

REACTIONS (6)
  - BLOOD CREATINE PHOSPHOKINASE MB INCREASED [None]
  - BLOOD GLUCOSE INCREASED [None]
  - BLOOD POTASSIUM INCREASED [None]
  - CARDIO-RESPIRATORY ARREST [None]
  - FALL [None]
  - RESUSCITATION [None]
